FAERS Safety Report 6061610-1 (Version None)
Quarter: 2009Q1

REPORT INFORMATION
  Report Type: 
  Country: None (occurrence: None)
  Receive Date: 20090202
  Receipt Date: 20090123
  Transmission Date: 20090719
  Serious: Yes (Hospitalization, Disabling)
  Sender: FDA-Public Use
  Company Number: A0729297A

PATIENT
  Age: 56 Year
  Sex: Male
  Weight: 91.8 kg

DRUGS (4)
  1. AVANDIA [Suspect]
     Route: 048
     Dates: start: 20050601, end: 20070401
  2. GLUCOPHAGE [Concomitant]
  3. GLYBURIDE [Concomitant]
  4. GLYNASE [Concomitant]

REACTIONS (1)
  - MYOCARDIAL INFARCTION [None]
